FAERS Safety Report 18138878 (Version 1)
Quarter: 2020Q3

REPORT INFORMATION
  Report Type: Spontaneous
  Country: DE (occurrence: DE)
  Receive Date: 20200812
  Receipt Date: 20200812
  Transmission Date: 20201103
  Serious: Yes (Other)
  Sender: FDA-Public Use
  Company Number: DE-DRREDDYS-GER/GER/20/0125837

PATIENT
  Age: 8 Week
  Sex: Male

DRUGS (5)
  1. BOXHORNKLEE [Suspect]
     Active Substance: FENUGREEK LEAF\HERBALS
     Indication: PRODUCT USED FOR UNKNOWN INDICATION
     Dosage: 3X TAEGLICH CA. 2?3 WOCHEN VOR GEBURT ?3 TIMES A DAY APPROX. 2?3 WEEKS BEFORE BIRTH
     Route: 064
  2. ROTAVIRUS VACCINE [Suspect]
     Active Substance: HUMAN ROTAVIRUS A
     Indication: PRODUCT USED FOR UNKNOWN INDICATION
     Route: 048
  3. IBUPROFEN. [Suspect]
     Active Substance: IBUPROFEN
     Indication: PRODUCT USED FOR UNKNOWN INDICATION
     Dosage: CA. 3?4 TAGE
     Route: 064
  4. MACROGOL [Suspect]
     Active Substance: POLYETHYLENE GLYCOLS
     Indication: PRODUCT USED FOR UNKNOWN INDICATION
     Dosage: VON DER MUTTER POSTPARTAL EINGENOMMEN ?TAKEN BY THE MOTHER POSTPARTUM
     Route: 063
  5. OBSTINOL [Suspect]
     Active Substance: CALCIUM PANTOTHENATE\DANTHRON
     Indication: PRODUCT USED FOR UNKNOWN INDICATION
     Dosage: VON DER MUTTER POSTPARTAL EINGENOMMEN ?TAKEN BY THE MOTHER POSTPARTUM
     Route: 063

REACTIONS (5)
  - Transaminases increased [Recovered/Resolved]
  - Foetal exposure during pregnancy [Unknown]
  - Liver injury [Unknown]
  - Cholestasis [Unknown]
  - Hypovitaminosis [Unknown]

NARRATIVE: CASE EVENT DATE: 2020
